FAERS Safety Report 8896095 (Version 3)
Quarter: 2013Q1

REPORT INFORMATION
  Report Type: Spontaneous
  Country: US (occurrence: US)
  Receive Date: 20121107
  Receipt Date: 20130326
  Transmission Date: 20140127
  Serious: Yes (Hospitalization, Other)
  Sender: FDA-Public Use
  Company Number: US-009507513-1210USA012626

PATIENT
  Sex: Female
  Weight: 61.22 kg

DRUGS (4)
  1. FOSAMAX [Suspect]
     Indication: OSTEOPENIA
     Dosage: UNK
     Route: 048
     Dates: start: 20050405, end: 200604
  2. ACTONEL [Suspect]
     Indication: OSTEOPENIA
     Dosage: 35 MG, UNK
     Route: 048
     Dates: start: 20040416, end: 20050301
  3. BONIVA [Suspect]
     Indication: OSTEOPENIA
     Dosage: 150 MG, UNK
     Route: 048
     Dates: start: 20060413, end: 201104
  4. FLONASE [Concomitant]
     Indication: HYPERSENSITIVITY
     Dosage: UNK
     Dates: start: 200402

REACTIONS (41)
  - Intramedullary rod insertion [Recovered/Resolved]
  - Femur fracture [Unknown]
  - Femur fracture [Unknown]
  - Low turnover osteopathy [Unknown]
  - Endodontic procedure [Unknown]
  - Barrett^s oesophagus [Not Recovered/Not Resolved]
  - Inappropriate schedule of drug administration [Unknown]
  - Intervertebral disc protrusion [Unknown]
  - Arthritis [Unknown]
  - Endodontic procedure [Unknown]
  - Hiatus hernia [Unknown]
  - Haemoglobin decreased [Recovered/Resolved]
  - Haemorrhage [Recovered/Resolved]
  - Osteoarthritis [Unknown]
  - Cystitis [Unknown]
  - Respiratory disorder [Unknown]
  - Pathological fracture [Unknown]
  - Inflammation [Unknown]
  - Hyperlipidaemia [Unknown]
  - Lumbar radiculopathy [Unknown]
  - Spondylolisthesis [Unknown]
  - Pain [Unknown]
  - Meniscus injury [Unknown]
  - Drug intolerance [Recovered/Resolved]
  - Bursitis [Recovering/Resolving]
  - Bacterial infection [Unknown]
  - Bacterial infection [Unknown]
  - Bacterial infection [Unknown]
  - Bronchitis [Unknown]
  - Inflammation [Unknown]
  - Inflammation [Unknown]
  - Ear infection bacterial [Unknown]
  - Upper respiratory tract infection [Unknown]
  - Upper respiratory tract infection [Unknown]
  - Upper respiratory tract infection [Unknown]
  - Bowel preparation [Unknown]
  - Nausea [Unknown]
  - Back pain [Unknown]
  - Musculoskeletal pain [Unknown]
  - Gastrooesophageal reflux disease [Not Recovered/Not Resolved]
  - Pain in extremity [Recovered/Resolved]
